FAERS Safety Report 22280588 (Version 5)
Quarter: 2025Q4

REPORT INFORMATION
  Report Type: Spontaneous
  Country: US (occurrence: US)
  Receive Date: 20230503
  Receipt Date: 20251119
  Transmission Date: 20260118
  Serious: No
  Sender: VERTEX
  Company Number: US-VERTEX PHARMACEUTICALS-2023-006115

PATIENT

DRUGS (2)
  1. TRIKAFTA [Suspect]
     Active Substance: ELEXACAFTOR\IVACAFTOR\TEZACAFTOR
     Indication: Cystic fibrosis
     Dosage: UNKNOWN DOSAGE REGIMEN
     Route: 048
  2. TRIKAFTA [Suspect]
     Active Substance: ELEXACAFTOR\IVACAFTOR\TEZACAFTOR
     Dosage: LOWER DOSE (ONE PILL A DAY ABOUT 1-2 TIMES A WEEK)
     Route: 048

REACTIONS (7)
  - Productive cough [Unknown]
  - Chest discomfort [Not Recovered/Not Resolved]
  - Secretion discharge [Recovered/Resolved]
  - Gastrointestinal disorder [Not Recovered/Not Resolved]
  - Oropharyngeal pain [Not Recovered/Not Resolved]
  - Pain [Unknown]
  - Acne [Not Recovered/Not Resolved]
